FAERS Safety Report 6416933-0 (Version None)
Quarter: 2009Q4

REPORT INFORMATION
  Report Type: 
  Country: None (occurrence: None)
  Receive Date: 20091023
  Receipt Date: 20091012
  Transmission Date: 20100525
  Serious: Yes (Hospitalization)
  Sender: FDA-Public Use
  Company Number: 8052609

PATIENT
  Age: 71 Year
  Sex: Female
  Weight: 72 kg

DRUGS (12)
  1. CERTOLIZUMAB PEGOL [Suspect]
     Indication: RHEUMATOID ARTHRITIS
     Dosage: 400 MG 1 /2W SC
     Route: 058
     Dates: start: 20050928, end: 20071121
  2. CERTOLIZUMAB PEGOL [Suspect]
     Indication: RHEUMATOID ARTHRITIS
     Dosage: 200 MG 1/2W SC
     Route: 058
     Dates: start: 20071206, end: 20090923
  3. METHOTREXATE [Concomitant]
  4. MELOXICAM [Concomitant]
  5. METHYLPREDNISOLONE [Concomitant]
  6. FOLIC ACID [Concomitant]
  7. SILYMARIN [Concomitant]
  8. CALCIUM CARBONATE [Concomitant]
  9. ERGOCALCIFEROL [Concomitant]
  10. PERINDOPRIL [Concomitant]
  11. AMOKSIKLAV [Concomitant]
  12. POLIVITAMINS [Concomitant]

REACTIONS (22)
  - ALANINE AMINOTRANSFERASE INCREASED [None]
  - ASPARTATE AMINOTRANSFERASE INCREASED [None]
  - BLOOD ALKALINE PHOSPHATASE INCREASED [None]
  - BLOOD ALKALINE PHOSPHATASE NORMAL [None]
  - BLOOD AMYLASE DECREASED [None]
  - BLOOD BILIRUBIN INCREASED [None]
  - BLOOD CREATININE INCREASED [None]
  - BLOOD FIBRINOGEN INCREASED [None]
  - BLOOD POTASSIUM DECREASED [None]
  - BLOOD UREA DECREASED [None]
  - ENDOMETRIAL HYPERPLASIA [None]
  - ESCHERICHIA SEPSIS [None]
  - HAEMATOCRIT DECREASED [None]
  - HAEMOGLOBIN DECREASED [None]
  - LYMPHOCYTE PERCENTAGE DECREASED [None]
  - NEUTROPHIL PERCENTAGE INCREASED [None]
  - PLATELET COUNT INCREASED [None]
  - POST PROCEDURAL INFECTION [None]
  - RED BLOOD CELL COUNT DECREASED [None]
  - RED BLOOD CELL COUNT INCREASED [None]
  - URINE ANALYSIS ABNORMAL [None]
  - UTERINE POLYP [None]
